FAERS Safety Report 9472211 (Version 1)
Quarter: 2013Q3

REPORT INFORMATION
  Report Type: Spontaneous
  Country: US (occurrence: None)
  Receive Date: 20130821
  Receipt Date: 20130821
  Transmission Date: 20140515
  Serious: No
  Sender: FDA-Public Use
  Company Number: None

PATIENT
  Age: 3 Year
  Sex: Female
  Weight: 17.24 kg

DRUGS (1)
  1. ZYRTEC [Suspect]
     Dosage: 1/2 TSP?TWICE DAILY

REACTIONS (6)
  - Mood altered [None]
  - Anger [None]
  - Psychomotor hyperactivity [None]
  - Palpitations [None]
  - Condition aggravated [None]
  - Abnormal behaviour [None]
